FAERS Safety Report 24453169 (Version 2)
Quarter: 2024Q4

REPORT INFORMATION
  Report Type: Report from Study
  Country: CA (occurrence: CA)
  Receive Date: 20241017
  Receipt Date: 20241018
  Transmission Date: 20250114
  Serious: No
  Sender: ROCHE
  Company Number: CA-ROCHE-3113764

PATIENT
  Age: 55 Year
  Sex: Male

DRUGS (4)
  1. RITUXAN [Suspect]
     Active Substance: RITUXIMAB
     Indication: Granulomatosis with polyangiitis
     Dosage: TWO INFUSIONS OF 500MG TWO WEEKS APART INSTEAD OF INFUSIONS ONCE WEEKLY FOR 4 WEEKS AT A DOSE OF 375
     Route: 041
     Dates: start: 20131122
  2. RITUXAN [Suspect]
     Active Substance: RITUXIMAB
     Dosage: ONCE WEEKLY FOR 4 WEEKS AT A DOSE OF 375MG/M 2.
     Route: 041
  3. VASOTEC [Concomitant]
     Active Substance: ENALAPRIL MALEATE
     Indication: Product used for unknown indication
  4. PANTOPRAZOLE MAGNESIUM [Concomitant]
     Active Substance: PANTOPRAZOLE MAGNESIUM
     Indication: Product used for unknown indication

REACTIONS (3)
  - SARS-CoV-2 test positive [Unknown]
  - Off label use [Unknown]
  - COVID-19 [Unknown]

NARRATIVE: CASE EVENT DATE: 20220606
